FAERS Safety Report 7765818-6 (Version None)
Quarter: 2011Q3

REPORT INFORMATION
  Report Type: 
  Country: None (occurrence: None)
  Receive Date: 20110906
  Receipt Date: 20110614
  Transmission Date: 20111222
  Serious: No
  Sender: FDA-Public Use
  Company Number: 201004015

PATIENT
  Age: 69 Year
  Sex: Female
  Weight: 61.2356 kg

DRUGS (5)
  1. XIAFLEX (COLLAGENASE CLOSTRIDIUM HISTOLYTICUM) [Suspect]
     Indication: DUPUYTREN'S CONTRACTURE
     Dosage: INTRALESIONAL
     Route: 026
     Dates: start: 20100316, end: 20100316
  2. ULTRAM [Concomitant]
  3. SIMVASTATIN [Concomitant]
  4. PREMARIN [Concomitant]
  5. EXTRA STRENGTH TYLENOL [Concomitant]

REACTIONS (5)
  - OEDEMA PERIPHERAL [None]
  - TENDERNESS [None]
  - CONDITION AGGRAVATED [None]
  - CONTUSION [None]
  - LACERATION [None]
